FAERS Safety Report 9674943 (Version 3)
Quarter: 2014Q1

REPORT INFORMATION
  Report Type: Report from Study
  Country: US (occurrence: US)
  Receive Date: 20131107
  Receipt Date: 20140102
  Transmission Date: 20141002
  Serious: Yes (Hospitalization)
  Sender: FDA-Public Use
  Company Number: US-JNJFOC-20131100112

PATIENT
  Age: 15 Year
  Sex: Female
  Weight: 57 kg

DRUGS (4)
  1. REMICADE [Suspect]
     Indication: INFLAMMATORY BOWEL DISEASE
     Route: 042
     Dates: start: 20120404
  2. CHOLESTYRAMINE [Concomitant]
     Route: 065
  3. LOPERAMIDE [Concomitant]
     Route: 065
  4. CIPROFLOXACIN [Concomitant]
     Route: 065

REACTIONS (1)
  - Pancreatitis [Recovered/Resolved]
